FAERS Safety Report 5345397-3 (Version None)
Quarter: 2007Q2

REPORT INFORMATION
  Report Type: 
  Country: None (occurrence: None)
  Receive Date: 20070601
  Receipt Date: 20070521
  Transmission Date: 20071010
  Serious: Yes (Life-Threatening)
  Sender: FDA-Public Use
  Company Number: 16654

PATIENT
  Sex: Male
  Weight: 3.1 kg

DRUGS (6)
  1. METOCLOPRAMIDE [Suspect]
     Indication: VOMITING
     Dosage: 10 MG DAILY UNK
     Dates: start: 20061208, end: 20061218
  2. OMEPRAZOLE [Suspect]
     Indication: VOMITING
     Dosage: 40 MG FREQ UNK TL
     Dates: start: 20070101
  3. CYCLIZINE [Suspect]
     Indication: VOMITING
  4. PROCHLORPERAZINE [Suspect]
  5. ZOFRAN [Suspect]
     Indication: VOMITING
  6. FERROUS FUMARATE [Concomitant]

REACTIONS (3)
  - DRUG EXPOSURE DURING PREGNANCY [None]
  - MECONIUM ABNORMAL [None]
  - NECROTISING ENTEROCOLITIS NEONATAL [None]
